FAERS Safety Report 22915054 (Version 2)
Quarter: 2023Q4

REPORT INFORMATION
  Report Type: Spontaneous
  Country: US (occurrence: None)
  Receive Date: 20230907
  Receipt Date: 20231018
  Transmission Date: 20240110
  Serious: No
  Sender: FDA-Public Use
  Company Number: 2023A201047

PATIENT

DRUGS (1)
  1. FASENRA [Suspect]
     Active Substance: BENRALIZUMAB
     Indication: Asthma
     Route: 058

REACTIONS (5)
  - Pyrexia [Unknown]
  - Feeling cold [Unknown]
  - Nausea [Unknown]
  - Respiratory tract congestion [Unknown]
  - Oral herpes [Unknown]

NARRATIVE: CASE EVENT DATE: 20230811
